FAERS Safety Report 7077770-X (Version None)
Quarter: 2010Q4

REPORT INFORMATION
  Report Type: 
  Country: None (occurrence: None)
  Receive Date: 20101101
  Receipt Date: 20101019
  Transmission Date: 20110411
  Serious: Yes (Other)
  Sender: FDA-Public Use
  Company Number: PHHO2010GB16485

PATIENT

DRUGS (2)
  1. ZOMETA [Suspect]
  2. SUTENT [Concomitant]

REACTIONS (1)
  - OSTEONECROSIS OF JAW [None]
